FAERS Safety Report 5202844-5 (Version None)
Quarter: 2006Q4

REPORT INFORMATION
  Report Type: 
  Country: None (occurrence: None)
  Receive Date: 20061016
  Receipt Date: 20020611
  Transmission Date: 20070319
  Serious: Yes (Hospitalization)
  Sender: FDA-Public Use
  Company Number: PHEH2002US05374

PATIENT
  Age: 82 Year
  Sex: Female
  Weight: 48.1 kg

DRUGS (8)
  1. MIACALCIN [Suspect]
     Indication: OSTEOPOROSIS
     Dosage: 200 IU/ML, QD, INTRANASAL
     Route: 045
     Dates: start: 20020519, end: 20020530
  2. COZAAR [Concomitant]
  3. PREMPRO [Concomitant]
  4. DAILY VITAMINS (VITAMINS NOS) [Concomitant]
  5. CALCIUM (CALCIUM) [Concomitant]
  6. CHLORPHENAMINE (CHLORPHENAMINE) [Concomitant]
  7. ANTIVERT [Concomitant]
  8. ASPIRIN [Concomitant]

REACTIONS (3)
  - OEDEMA PERIPHERAL [None]
  - PAIN [None]
  - THROMBOPHLEBITIS [None]
